FAERS Safety Report 24925526 (Version 1)
Quarter: 2025Q1

REPORT INFORMATION
  Report Type: Report from Study
  Country: US (occurrence: US)
  Receive Date: 20250204
  Receipt Date: 20250204
  Transmission Date: 20250408
  Serious: No
  Sender: EXELIXIS
  Company Number: US-EXELIXIS-CABO-24076332

PATIENT
  Sex: Male

DRUGS (1)
  1. CABOMETYX [Suspect]
     Active Substance: CABOZANTINIB S-MALATE
     Indication: Renal cancer
     Dosage: 60 MG, QD
     Route: 048
     Dates: start: 202403

REACTIONS (12)
  - Visual impairment [Unknown]
  - Back pain [Unknown]
  - Glossodynia [Unknown]
  - Blood pressure increased [Unknown]
  - Impaired healing [Unknown]
  - Wound [Unknown]
  - Myalgia [Unknown]
  - Oral pain [Unknown]
  - Diarrhoea [Unknown]
  - Pruritus [Unknown]
  - Pain in extremity [Unknown]
  - Pain [Unknown]
